FAERS Safety Report 12665002 (Version 1)
Quarter: 2016Q3

REPORT INFORMATION
  Report Type: Spontaneous
  Country: GB (occurrence: GB)
  Receive Date: 20160818
  Receipt Date: 20160818
  Transmission Date: 20161109
  Serious: Yes (Death, Other)
  Sender: FDA-Public Use
  Company Number: GB-MYLANLABS-2016M1033851

PATIENT

DRUGS (8)
  1. LAMOTRIGINE MYLAN [Suspect]
     Active Substance: LAMOTRIGINE
     Dosage: UNK
  2. NICOTINE. [Concomitant]
     Active Substance: NICOTINE
     Dosage: UNK
  3. ZAPONEX [Suspect]
     Active Substance: CLOZAPINE
     Indication: SCHIZOPHRENIA
     Dosage: UNK (100MG MORNING, 200MG NOCTE)
     Route: 048
     Dates: start: 20081127, end: 20160506
  4. PARACETAMOL [Concomitant]
     Active Substance: ACETAMINOPHEN
     Dosage: UNK
  5. CAFFEINE. [Concomitant]
     Active Substance: CAFFEINE
     Dosage: UNK
  6. GALANTAMINE. [Concomitant]
     Active Substance: GALANTAMINE
     Dosage: 5 MG, UNK
  7. LANSOPRAZOLE. [Concomitant]
     Active Substance: LANSOPRAZOLE
     Dosage: UNK
  8. ETHANOL [Concomitant]
     Active Substance: ALCOHOL
     Dosage: UNK

REACTIONS (10)
  - Aortic arteriosclerosis [Not Recovered/Not Resolved]
  - Cardiac arrest [Not Recovered/Not Resolved]
  - Cholelithiasis [Not Recovered/Not Resolved]
  - Pulmonary oedema [Not Recovered/Not Resolved]
  - Arteriosclerosis coronary artery [Not Recovered/Not Resolved]
  - Antipsychotic drug level increased [Not Recovered/Not Resolved]
  - Overdose [Fatal]
  - Toxicity to various agents [Fatal]
  - Left ventricular hypertrophy [Not Recovered/Not Resolved]
  - Hepatic steatosis [Not Recovered/Not Resolved]

NARRATIVE: CASE EVENT DATE: 20160506
